FAERS Safety Report 25028966 (Version 5)
Quarter: 2025Q3

REPORT INFORMATION
  Report Type: Report from Study
  Country: US (occurrence: US)
  Receive Date: 20250302
  Receipt Date: 20250813
  Transmission Date: 20251021
  Serious: No
  Sender: SUNOVION
  Company Number: US-SMPA-2025SPA001530AA

PATIENT
  Age: 68 Year
  Sex: Male

DRUGS (17)
  1. ORGOVYX [Suspect]
     Active Substance: RELUGOLIX
     Indication: Prostate cancer
     Dosage: 360 MG, SINGLE
     Route: 048
     Dates: start: 202501, end: 202501
  2. ORGOVYX [Suspect]
     Active Substance: RELUGOLIX
     Dosage: 120 MG, QD
     Route: 048
     Dates: start: 202501
  3. Turmeric complex [Concomitant]
  4. TAMSULOSIN [Concomitant]
     Active Substance: TAMSULOSIN
  5. TIZANIDINE [Concomitant]
     Active Substance: TIZANIDINE
  6. VALIUM [Concomitant]
     Active Substance: DIAZEPAM
  7. ZINC GLUCONATE [Concomitant]
     Active Substance: ZINC GLUCONATE
  8. ZOLPIDEM [Concomitant]
     Active Substance: ZOLPIDEM TARTRATE
  9. ASPIRIN [Concomitant]
     Active Substance: ASPIRIN
  10. DULOXETINE [Concomitant]
     Active Substance: DULOXETINE
  11. LISINOPRIL [Concomitant]
     Active Substance: LISINOPRIL
  12. LUBIPROSTONE [Concomitant]
     Active Substance: LUBIPROSTONE
  13. MAGNESIUM CITRATE [Concomitant]
     Active Substance: MAGNESIUM CITRATE
  14. CALCIUM\CHOLECALCIFEROL [Concomitant]
     Active Substance: CALCIUM\CHOLECALCIFEROL
  15. ROSUVASTATIN [Concomitant]
     Active Substance: ROSUVASTATIN
  16. MAGNESIUM [Concomitant]
     Active Substance: MAGNESIUM
  17. ZINC [Concomitant]
     Active Substance: ZINC

REACTIONS (7)
  - Pain [Unknown]
  - Urine flow decreased [Unknown]
  - Dysuria [Unknown]
  - Night sweats [Unknown]
  - Hot flush [Unknown]
  - Asthenia [Unknown]
  - Hyperhidrosis [Unknown]
